FAERS Safety Report 18367850 (Version 1)
Quarter: 2020Q4

REPORT INFORMATION
  Report Type: Report from Study
  Country: CA (occurrence: CA)
  Receive Date: 20201009
  Receipt Date: 20201009
  Transmission Date: 20210114
  Serious: Yes (Hospitalization, Other)
  Sender: FDA-Public Use
  Company Number: CA-JNJFOC-20200418572

PATIENT
  Age: 56 Year
  Sex: Male

DRUGS (2)
  1. STELARA [Suspect]
     Active Substance: USTEKINUMAB
     Indication: PSORIASIS
     Route: 058
  2. STELARA [Suspect]
     Active Substance: USTEKINUMAB

REACTIONS (6)
  - Dehydration [Unknown]
  - Psoriasis [Not Recovered/Not Resolved]
  - Colectomy [Unknown]
  - Renal failure [Unknown]
  - Hospitalisation [Unknown]
  - Lymphoedema [Unknown]

NARRATIVE: CASE EVENT DATE: 2015
